FAERS Safety Report 6508696-5 (Version None)
Quarter: 2009Q4

REPORT INFORMATION
  Report Type: 
  Country: None (occurrence: None)
  Receive Date: 20091221
  Receipt Date: 20081230
  Transmission Date: 20100525
  Serious: No
  Sender: FDA-Public Use
  Company Number: US-ASTRAZENECA-2008UW28966

PATIENT
  Age: 59 Year
  Sex: Male
  Weight: 110.7 kg

DRUGS (8)
  1. CRESTOR [Suspect]
     Dosage: 5-20 MG
     Route: 048
     Dates: start: 20030101
  2. PLAVIX [Concomitant]
  3. PLETAL [Concomitant]
  4. AVODART [Concomitant]
     Dosage: DAILT
  5. GLIPIZIDE [Concomitant]
  6. FOLIC ACID [Concomitant]
  7. VITAMIN B-12 [Concomitant]
  8. VITAMIN B6 [Concomitant]

REACTIONS (1)
  - HIGH DENSITY LIPOPROTEIN DECREASED [None]
